FAERS Safety Report 5728199-5 (Version None)
Quarter: 2008Q2

REPORT INFORMATION
  Report Type: 
  Country: None (occurrence: None)
  Receive Date: 20080501
  Receipt Date: 20080418
  Transmission Date: 20081010
  Serious: Yes (Hospitalization)
  Sender: FDA-Public Use
  Company Number: 163-20785-08041405

PATIENT
  Age: 79 Year
  Sex: Male

DRUGS (24)
  1. THALOMID [Suspect]
     Indication: METASTASES TO LIVER
     Dosage: SEE IMAGE
     Route: 048
     Dates: start: 20080218, end: 20080301
  2. THALOMID [Suspect]
     Indication: PANCREATIC CARCINOMA
     Dosage: SEE IMAGE
     Route: 048
     Dates: start: 20080218, end: 20080301
  3. THALOMID [Suspect]
     Indication: METASTASES TO LIVER
     Dosage: SEE IMAGE
     Route: 048
     Dates: start: 20080328
  4. THALOMID [Suspect]
     Indication: PANCREATIC CARCINOMA
     Dosage: SEE IMAGE
     Route: 048
     Dates: start: 20080328
  5. THALOMID [Suspect]
     Indication: METASTASES TO LIVER
     Dosage: SEE IMAGE
     Route: 048
     Dates: start: 20080424
  6. THALOMID [Suspect]
     Indication: PANCREATIC CARCINOMA
     Dosage: SEE IMAGE
     Route: 048
     Dates: start: 20080424
  7. CELEXA (CITRALOPRAM HYDROBROMIDE) [Concomitant]
  8. LINEZOLID [Concomitant]
  9. VORICONAZOLE (VORICONAZOLE) [Concomitant]
  10. ARANESP (DARBEPOETI ALFA) [Concomitant]
  11. SENOKOT [Concomitant]
  12. COLACE (DOCUSATE SODIUM) [Concomitant]
  13. HEPARIN [Concomitant]
  14. NEXIUM [Concomitant]
  15. FERROUS SULFATE TAB [Concomitant]
  16. TEIGECYCLINE (TIGECYCLINE) [Concomitant]
  17. GENTAMICIN SULFATE [Concomitant]
  18. CREON (NORTASE) [Concomitant]
  19. SIMETHICONE (DIMETICONE, ACTIVATED) [Concomitant]
  20. ACETAMINOPHEN [Concomitant]
  21. DILAUDID [Concomitant]
  22. IMIPENEM (IMIPENEM) [Concomitant]
  23. ZYVOX [Concomitant]
  24. PANCRELIPASE (PANCRELIPASE) [Concomitant]

REACTIONS (3)
  - FATIGUE [None]
  - MALIGNANT MELANOMA [None]
  - PYREXIA [None]
